FAERS Safety Report 6764139-8 (Version None)
Quarter: 2010Q2

REPORT INFORMATION
  Report Type: 
  Country: None (occurrence: None)
  Receive Date: 20100610
  Receipt Date: 20100604
  Transmission Date: 20101027
  Serious: Yes (Death, Hospitalization)
  Sender: FDA-Public Use
  Company Number: A0832354A

PATIENT
  Age: 62 Year
  Sex: Male
  Weight: 102.3 kg

DRUGS (8)
  1. AVANDIA [Suspect]
     Dosage: 8MG PER DAY
     Route: 048
     Dates: start: 20060901, end: 20080229
  2. DEMADEX [Concomitant]
  3. XANAX [Concomitant]
  4. SERTRALINE HCL [Concomitant]
  5. FLOMAX [Concomitant]
  6. PROTONIX [Concomitant]
  7. XOPENEX [Concomitant]
  8. CHANTIX [Concomitant]

REACTIONS (3)
  - CONGESTIVE CARDIOMYOPATHY [None]
  - CORONARY ARTERY DISEASE [None]
  - MYOCARDIAL INFARCTION [None]
